FAERS Safety Report 14948065 (Version 3)
Quarter: 2018Q3

REPORT INFORMATION
  Report Type: Spontaneous
  Country: US (occurrence: US)
  Receive Date: 20180529
  Receipt Date: 20180914
  Transmission Date: 20181010
  Serious: Yes (Congenital Anomaly, Other)
  Sender: FDA-Public Use
  Company Number: PHEH2018US020651

PATIENT
  Sex: Female

DRUGS (1)
  1. ZOFRAN [Suspect]
     Active Substance: ONDANSETRON HYDROCHLORIDE
     Indication: FOETAL EXPOSURE DURING PREGNANCY
     Dosage: MOTHER DOSE: 8 MG, QD
     Route: 064

REACTIONS (24)
  - Ventricular septal defect [Unknown]
  - Tricuspid valve incompetence [Unknown]
  - Cardiac murmur [Unknown]
  - Fall [Unknown]
  - Left atrial enlargement [Unknown]
  - Premature baby [Unknown]
  - Pharyngitis streptococcal [Unknown]
  - Atrial septal defect [Unknown]
  - Mitral valve incompetence [Unknown]
  - Cardiac failure congestive [Unknown]
  - Foetal exposure during pregnancy [Unknown]
  - Cough [Unknown]
  - Upper respiratory tract infection [Unknown]
  - Patent ductus arteriosus [Unknown]
  - Tachypnoea [Unknown]
  - Nasopharyngitis [Unknown]
  - Gastrooesophageal reflux disease [Unknown]
  - Failure to thrive [Unknown]
  - Pneumonia [Unknown]
  - Viral infection [Unknown]
  - Left ventricular hypertrophy [Unknown]
  - Respiratory distress [Unknown]
  - Pathological fracture [Unknown]
  - Left-to-right cardiac shunt [Unknown]
